FAERS Safety Report 7245095-5 (Version None)
Quarter: 2011Q1

REPORT INFORMATION
  Report Type: 
  Country: None (occurrence: None)
  Receive Date: 20110118
  Receipt Date: 20110104
  Transmission Date: 20110831
  Serious: Yes (Other)
  Sender: FDA-Public Use
  Company Number: 2011AP000006

PATIENT
  Age: 56 Year
  Sex: Female
  Weight: 86.1834 kg

DRUGS (13)
  1. GABAPENTIN [Concomitant]
  2. TRAMADOL HCL [Concomitant]
  3. CHANTIX [Suspect]
     Indication: SMOKING CESSATION THERAPY
     Dosage: 0.5 MG;QD;PO ; 1 MG;BID;PO
     Route: 048
     Dates: start: 20100813
  4. CHANTIX [Suspect]
     Indication: SMOKING CESSATION THERAPY
     Dosage: 0.5 MG;QD;PO ; 1 MG;BID;PO
     Route: 048
     Dates: start: 20100801, end: 20101013
  5. CLONAZEPAM [Concomitant]
  6. VENLAFAXINE [Concomitant]
  7. HYDROCODONE BITARTRATE [Concomitant]
  8. LORAZEPAM [Concomitant]
  9. ATORVASTATIN CALCIUM [Concomitant]
  10. ZIPRASIDONE HYDROCHLORIDE [Concomitant]
  11. TRAZODONE HYDROCHLORIDE TABLETS (100 MG) [Suspect]
     Indication: SLEEP DISORDER
     Dosage: 200 MG;HS
  12. TRAZODONE HYDROCHLORIDE TABLETS (100 MG) [Suspect]
     Indication: ANXIETY
     Dosage: 200 MG;HS
  13. ACETAMINOPHEN [Concomitant]

REACTIONS (3)
  - SUICIDAL IDEATION [None]
  - CARDIAC FLUTTER [None]
  - SOMNOLENCE [None]
